FAERS Safety Report 6100315-5 (Version None)
Quarter: 2009Q1

REPORT INFORMATION
  Report Type: 
  Country: None (occurrence: None)
  Receive Date: 20090303
  Receipt Date: 20090225
  Transmission Date: 20090719
  Serious: Yes (Hospitalization)
  Sender: FDA-Public Use
  Company Number: DE-MERCK-0902DEU00364

PATIENT
  Age: 71 Year
  Sex: Male
  Weight: 76 kg

DRUGS (13)
  1. FOSAMAX [Suspect]
     Indication: BONE PAIN
     Route: 048
     Dates: start: 20070101
  2. ASPIRIN [Suspect]
     Indication: CORONARY ARTERY DISEASE
     Route: 048
     Dates: start: 20050101, end: 20080911
  3. CALCIUM (UNSPECIFIED) [Concomitant]
     Indication: RENAL IMPAIRMENT
     Route: 048
     Dates: start: 20060101
  4. DIGITOXIN [Concomitant]
     Indication: ATRIAL FIBRILLATION
     Route: 048
     Dates: start: 20050101
  5. ASCORBIC ACID AND VITAMIN B (UNSPECIFIED) [Concomitant]
     Indication: HYPOVITAMINOSIS
     Route: 048
     Dates: start: 20050101
  6. METOPROLOL TARTRATE [Concomitant]
     Indication: ATRIAL FIBRILLATION
     Route: 048
     Dates: start: 20050101
  7. INSULIN, ISOPHANE [Concomitant]
     Indication: DIABETES MELLITUS
     Route: 058
     Dates: start: 20040401
  8. RAMIPRIL [Concomitant]
     Indication: HYPERTENSION
     Route: 048
     Dates: start: 20080201
  9. RANITIDINE [Concomitant]
     Indication: PROPHYLAXIS AGAINST GASTROINTESTINAL ULCER
     Route: 048
     Dates: start: 20080101, end: 20080911
  10. SODIUM POLYSTYRENE SULFONATE [Concomitant]
     Indication: RENAL IMPAIRMENT
     Route: 048
     Dates: start: 20060101
  11. BENSERAZIDE HYDROCHLORIDE AND LEVODOPA [Concomitant]
     Indication: PAIN
     Route: 048
     Dates: start: 20080201
  12. LORAZEPAM [Concomitant]
     Indication: PAIN
     Route: 048
     Dates: start: 20080201
  13. TRAMADOL HYDROCHLORIDE [Concomitant]
     Indication: PAIN
     Route: 048
     Dates: start: 20070101

REACTIONS (1)
  - GASTROINTESTINAL ULCER HAEMORRHAGE [None]
